FAERS Safety Report 7091786-9 (Version None)
Quarter: 2010Q4

REPORT INFORMATION
  Report Type: 
  Country: None (occurrence: None)
  Receive Date: 20101109
  Receipt Date: 20101029
  Transmission Date: 20110411
  Serious: Yes (Other)
  Sender: FDA-Public Use
  Company Number: CZ-GENENTECH-308991

PATIENT

DRUGS (1)
  1. RITUXIMAB [Suspect]
     Indication: NON-HODGKIN'S LYMPHOMA
     Dosage: 375 MG/M2, Q3M
     Route: 042
     Dates: start: 20080109, end: 20090326

REACTIONS (4)
  - AUTOIMMUNE THROMBOCYTOPENIA [None]
  - HEPATIC ENZYME INCREASED [None]
  - SIALOADENITIS [None]
  - UPPER RESPIRATORY TRACT INFECTION [None]
